FAERS Safety Report 8109555-7 (Version None)
Quarter: 2012Q1

REPORT INFORMATION
  Report Type: 
  Country: None (occurrence: None)
  Receive Date: 20120202
  Receipt Date: 20120126
  Transmission Date: 20120608
  Serious: Yes (Hospitalization)
  Sender: FDA-Public Use
  Company Number: US-PFIZER INC-2012020988

PATIENT
  Sex: Male

DRUGS (3)
  1. TAXOL [Suspect]
     Indication: METASTATIC SQUAMOUS CELL CARCINOMA
     Dosage: UNK
     Dates: start: 20110926, end: 20120118
  2. CARBOPLATIN [Suspect]
     Indication: METASTATIC SQUAMOUS CELL CARCINOMA
     Dosage: UNK
     Dates: start: 20110926, end: 20120118
  3. TORISEL [Suspect]
     Indication: METASTATIC SQUAMOUS CELL CARCINOMA
     Dosage: UNK
     Dates: start: 20110926, end: 20120118

REACTIONS (2)
  - EMBOLISM [None]
  - SUPRAVENTRICULAR TACHYCARDIA [None]
